FAERS Safety Report 5699668-1 (Version None)
Quarter: 2008Q2

REPORT INFORMATION
  Report Type: 
  Country: None (occurrence: None)
  Receive Date: 20080410
  Receipt Date: 20080404
  Transmission Date: 20081010
  Serious: Yes (Death, Other)
  Sender: FDA-Public Use
  Company Number: PHRM2008FR01179

PATIENT
  Age: 11 Year
  Sex: Male
  Weight: 43 kg

DRUGS (22)
  1. ZENAPAX [Suspect]
     Dosage: UNK, ONCE/SINGLE
     Route: 042
     Dates: start: 20080107, end: 20080107
  2. CELLCEPT [Suspect]
     Indication: BONE MARROW TRANSPLANT
     Dosage: 650 MG, TID
     Route: 042
     Dates: start: 20071206
  3. SOLU-MEDROL [Suspect]
     Indication: BONE MARROW TRANSPLANT
     Dosage: 50 MG, QID
     Route: 042
     Dates: start: 20071210
  4. LOXEN [Concomitant]
  5. PLITICAN [Concomitant]
  6. VANCOMYCIN HCL [Concomitant]
  7. FORTUM /UNK/ [Concomitant]
  8. CANCIDAS [Concomitant]
  9. ZOVIRAX [Concomitant]
  10. OMEPRAZOLE [Concomitant]
  11. PERFALGAN [Concomitant]
  12. VITAMIN K1 [Concomitant]
  13. SPASFON [Concomitant]
  14. NUBAIN [Concomitant]
  15. POLARAMINE [Concomitant]
  16. NEUPOGEN [Concomitant]
  17. TEGELINE [Concomitant]
     Route: 042
  18. FUNGIZONE [Concomitant]
  19. ATARAX [Concomitant]
  20. LEXOMIL [Concomitant]
  21. TIORFAN [Concomitant]
     Route: 048
     Dates: end: 20080108
  22. SANDIMMUNE [Suspect]
     Indication: BONE MARROW TRANSPLANT
     Dosage: 65 MG, UNK
     Route: 042
     Dates: start: 20071130

REACTIONS (7)
  - ACUTE RESPIRATORY DISTRESS SYNDROME [None]
  - COUGH [None]
  - DYSPNOEA [None]
  - GRAFT VERSUS HOST DISEASE [None]
  - MULTI-ORGAN FAILURE [None]
  - PULMONARY OEDEMA [None]
  - TOXOPLASMOSIS [None]
